FAERS Safety Report 4389380-3 (Version None)
Quarter: 2004Q2

REPORT INFORMATION
  Report Type: 
  Country: None (occurrence: None)
  Receive Date: 20040630
  Receipt Date: 20040614
  Transmission Date: 20050107
  Serious: Yes (Other)
  Sender: FDA-Public Use
  Company Number: 040628-0000387

PATIENT
  Age: 22 Year
  Sex: Male

DRUGS (1)
  1. SABRIL [Suspect]

REACTIONS (2)
  - OPTIC ATROPHY [None]
  - VISUAL FIELD DEFECT [None]
